FAERS Safety Report 11721214 (Version 3)
Quarter: 2018Q1

REPORT INFORMATION
  Report Type: Spontaneous
  Country: US (occurrence: US)
  Receive Date: 20151110
  Receipt Date: 20180315
  Transmission Date: 20180508
  Serious: Yes (Death, Hospitalization, Disabling)
  Sender: FDA-Public Use
  Company Number: US-ENDO PHARMACEUTICALS INC.-2015-003968

PATIENT
  Age: 66 Year
  Sex: Male
  Weight: 90.7 kg

DRUGS (6)
  1. TESTOPEL [Suspect]
     Active Substance: TESTOSTERONE
     Dosage: UNK UNKNOWN, UNKNOWN (12 PELLETS)
     Route: 058
     Dates: start: 20121015
  2. TESTOPEL [Suspect]
     Active Substance: TESTOSTERONE
     Dosage: UNK UNKNOWN, UNKNOWN (12 PELLETS INSERTED)
     Route: 058
     Dates: start: 20130503
  3. ANDROGEL [Suspect]
     Active Substance: TESTOSTERONE
     Indication: ANDROGEN REPLACEMENT THERAPY
     Dosage: ^TWO PUMPS PER DAY^
     Route: 065
     Dates: start: 20120815, end: 20121014
  4. AXIRON [Suspect]
     Active Substance: TESTOSTERONE
     Indication: ANDROGEN REPLACEMENT THERAPY
     Dosage: ^1 PUMP PER ARM ONCE A DAY^
     Route: 065
     Dates: start: 20130320, end: 20131213
  5. TESTOPEL [Suspect]
     Active Substance: TESTOSTERONE
     Indication: ANDROGEN REPLACEMENT THERAPY
     Dosage: UNK UNKNOWN, UNKNOWN (12 PELLETS)
     Route: 058
     Dates: start: 20131008
  6. TESTOPEL [Suspect]
     Active Substance: TESTOSTERONE
     Dosage: UNK UNKNOWN, UNKNOWN (12 PELLETS INSERTED)
     Route: 058
     Dates: start: 20130318

REACTIONS (5)
  - Cardiac arrest [Fatal]
  - Acute myocardial infarction [Unknown]
  - Coronary artery disease [Unknown]
  - Brain injury [Fatal]
  - Joint injury [Not Recovered/Not Resolved]

NARRATIVE: CASE EVENT DATE: 2013
